FAERS Safety Report 13461587 (Version 1)
Quarter: 2017Q2

REPORT INFORMATION
  Report Type: Spontaneous
  Country: RU (occurrence: RU)
  Receive Date: 20170420
  Receipt Date: 20170420
  Transmission Date: 20170830
  Serious: Yes (Hospitalization)
  Sender: FDA-Public Use
  Company Number: RU-ASTRAZENECA-2017SE40346

PATIENT
  Age: 66 Year
  Sex: Male
  Weight: 87 kg

DRUGS (5)
  1. ATORVASTATIN [Concomitant]
     Active Substance: ATORVASTATIN
  2. CARDIOMAGNYL [Concomitant]
     Active Substance: ASPIRIN\MAGNESIUM HYDROXIDE
  3. EGILOK [Concomitant]
     Active Substance: METOPROLOL TARTRATE
  4. BRILINTA [Suspect]
     Active Substance: TICAGRELOR
     Indication: MYOCARDIAL INFARCTION
     Route: 048
     Dates: start: 201701
  5. PRESTARIUM A [Concomitant]
     Active Substance: PERINDOPRIL ARGININE

REACTIONS (3)
  - Arrhythmia [Unknown]
  - Dyspnoea exertional [Unknown]
  - Angina pectoris [Unknown]

NARRATIVE: CASE EVENT DATE: 201702
